FAERS Safety Report 7727603-0 (Version None)
Quarter: 2011Q3

REPORT INFORMATION
  Report Type: 
  Country: None (occurrence: None)
  Receive Date: 20110902
  Receipt Date: 20110831
  Transmission Date: 20111222
  Serious: Yes (Life-Threatening, Hospitalization, Disabling)
  Sender: FDA-Public Use
  Company Number: DE-B.I. PHARMACEUTICALS,INC./RIDGEFIELD-2011-DE-04915DE

PATIENT
  Age: 50 Year
  Sex: Female
  Weight: 63 kg

DRUGS (3)
  1. LAFAMME [Concomitant]
     Route: 048
     Dates: end: 20101231
  2. METOPROLOL [Concomitant]
     Route: 048
     Dates: end: 20101231
  3. MICARDIS [Suspect]
     Route: 048
     Dates: start: 20100901, end: 20101231

REACTIONS (2)
  - HEPATIC NECROSIS [None]
  - TRANSAMINASES INCREASED [None]
